FAERS Safety Report 9628899 (Version 1)
Quarter: 2013Q4

REPORT INFORMATION
  Report Type: Spontaneous
  Country: JP (occurrence: JP)
  Receive Date: 20131017
  Receipt Date: 20131017
  Transmission Date: 20140711
  Serious: Yes (Other)
  Sender: FDA-Public Use
  Company Number: JP-SA-2013SA103375

PATIENT
  Age: 86 Year
  Sex: Female

DRUGS (2)
  1. AMARYL [Suspect]
     Indication: PRODUCT USED FOR UNKNOWN INDICATION
     Route: 048
     Dates: start: 200607, end: 201009
  2. AMARYL [Suspect]
     Indication: PRODUCT USED FOR UNKNOWN INDICATION
     Route: 048
     Dates: start: 200607, end: 201006

REACTIONS (2)
  - Dementia [Unknown]
  - Hypoglycaemia [Unknown]
